FAERS Safety Report 5502036-6 (Version None)
Quarter: 2007Q4

REPORT INFORMATION
  Report Type: 
  Country: None (occurrence: None)
  Receive Date: 20071030
  Receipt Date: 20061026
  Transmission Date: 20080405
  Serious: No
  Sender: FDA-Public Use
  Company Number: A0625067A

PATIENT
  Age: 53 Year
  Sex: Male

DRUGS (1)
  1. IMITREX [Suspect]
     Indication: MIGRAINE
     Dosage: 20MG SINGLE DOSE
     Route: 045

REACTIONS (3)
  - DYSPNOEA [None]
  - NAUSEA [None]
  - PHARMACEUTICAL PRODUCT COMPLAINT [None]
